FAERS Safety Report 8229691-4 (Version None)
Quarter: 2012Q1

REPORT INFORMATION
  Report Type: 
  Country: None (occurrence: None)
  Receive Date: 20120322
  Receipt Date: 20120320
  Transmission Date: 20120608
  Serious: Yes (Death)
  Sender: FDA-Public Use
  Company Number: PHHY2012DK024634

PATIENT
  Age: 72 Year
  Sex: Female

DRUGS (3)
  1. ONBREZ [Suspect]
     Indication: DYSPNOEA
     Dosage: 300 UG, UNK
  2. PREDNISOLONE [Concomitant]
     Dosage: 5 MG, QD
  3. PENICILLIN [Concomitant]

REACTIONS (1)
  - DEATH [None]
